FAERS Safety Report 7722907 (Version 12)
Quarter: 2013Q1

REPORT INFORMATION
  Report Type: Report from Study
  Country: US (occurrence: US)
  Receive Date: 20101220
  Receipt Date: 20130219
  Transmission Date: 20140127
  Serious: Yes (Life-Threatening, Hospitalization, Disabling, Other)
  Sender: FDA-Public Use
  Company Number: PHHO2010US18675

PATIENT
  Age: 63 Year
  Sex: Female
  Weight: 52 kg

DRUGS (6)
  1. CERTICAN [Suspect]
     Indication: RENAL TRANSPLANT
     Dosage: 0.75 MG, BID
     Route: 048
     Dates: start: 20101121, end: 20110111
  2. PROGRAF [Suspect]
     Indication: RENAL TRANSPLANT
     Dosage: 2 MG, BID
     Route: 048
     Dates: start: 20101121
  3. PREDNISONE [Concomitant]
     Indication: RENAL TRANSPLANT
     Dosage: 30 MG, UNK
     Route: 048
     Dates: start: 20110101, end: 20110108
  4. PREDNISONE [Concomitant]
     Dosage: 25 MG, UNK
     Dates: start: 20110109, end: 20110111
  5. PREDNISONE [Concomitant]
     Dosage: 20 MG, UNK
     Dates: start: 20110112
  6. INSULIN [Concomitant]
     Indication: DIABETES MELLITUS
     Dosage: 15 USQ DAILY
     Dates: start: 20101122, end: 20101215

REACTIONS (22)
  - Respiratory failure [Recovered/Resolved]
  - Diabetes mellitus [Recovered/Resolved]
  - Diabetic ketoacidosis [Recovered/Resolved]
  - Decreased appetite [Recovered/Resolved with Sequelae]
  - Dehydration [Recovered/Resolved]
  - Hyperglycaemia [Recovered/Resolved]
  - Hyperosmolar state [Recovered/Resolved]
  - Hypophagia [Recovered/Resolved]
  - Fungal abscess central nervous system [Recovered/Resolved]
  - Mental status changes [Not Recovered/Not Resolved]
  - Convulsion [Not Recovered/Not Resolved]
  - Lower respiratory tract infection fungal [Recovered/Resolved]
  - Asthenia [Recovered/Resolved]
  - Vomiting [Recovered/Resolved with Sequelae]
  - Nausea [Recovered/Resolved]
  - Diarrhoea [Recovered/Resolved]
  - Septic shock [Not Recovered/Not Resolved]
  - Escherichia urinary tract infection [Recovered/Resolved]
  - Pseudallescheria infection [Unknown]
  - Escherichia sepsis [Recovered/Resolved]
  - Hypocalcaemia [Not Recovered/Not Resolved]
  - Fatigue [Recovered/Resolved]
